FAERS Safety Report 7942518-0 (Version None)
Quarter: 2011Q4

REPORT INFORMATION
  Report Type: 
  Country: None (occurrence: None)
  Receive Date: 20111128
  Receipt Date: 20111102
  Transmission Date: 20120403
  Serious: Yes (Other)
  Sender: FDA-Public Use
  Company Number: IL-GLAXOSMITHKLINE-B0760858A

PATIENT
  Age: 50 Year
  Sex: Female

DRUGS (2)
  1. STEROID [Concomitant]
  2. PROMACTA [Suspect]
     Indication: IDIOPATHIC THROMBOCYTOPENIC PURPURA
     Route: 065
     Dates: start: 20110701

REACTIONS (8)
  - ARTHRALGIA [None]
  - SENSATION OF HEAVINESS [None]
  - PLATELET COUNT DECREASED [None]
  - PAIN IN EXTREMITY [None]
  - THROMBOCYTOPENIA [None]
  - DRUG INEFFECTIVE [None]
  - ABASIA [None]
  - GENERAL PHYSICAL HEALTH DETERIORATION [None]
